FAERS Safety Report 9524713 (Version 1)
Quarter: 2013Q1

REPORT INFORMATION
  Report Type: Spontaneous
  Country: US (occurrence: None)
  Receive Date: 20130305
  Receipt Date: 20130305
  Transmission Date: 20140127
  Serious: Yes (Other)
  Sender: FDA-Public Use
  Company Number: 163-21880-12021863

PATIENT
  Age: 69 Year
  Sex: Female

DRUGS (15)
  1. REVLIMID (LENALIDOMIDE) (25 MILLIGRAM, CAPSULES) [Suspect]
     Indication: PLASMA CELL MYELOMA
     Dosage: 25 MG CAPSULE, QD X 14 DAYS ON, THEN 7 OFF, PO
     Dates: start: 20120106, end: 20120507
  2. SUDAFED (PSEUDOEPHEDRINE HYDROCHLORIDE) [Concomitant]
  3. LEXAPRO (ESCITALOPRAM OXALATE) [Concomitant]
  4. MS CONTIN [Concomitant]
  5. FLUTICASONE [Concomitant]
  6. BYETTA (EXENATIDE) [Concomitant]
  7. LEVOTHYROXINE [Concomitant]
  8. ATENOLOL D (ATENOLOL W/HYDROCHLOROTHIAZIDE) [Concomitant]
  9. VICODIN [Concomitant]
  10. ACTOS (PIOGLITAZONE) [Concomitant]
  11. LISINOPRIL [Concomitant]
  12. HYDROCHLOROTHIAZIDE [Concomitant]
  13. COMPAZINE (PROCHLORPERAZINE EDISYLATE) [Concomitant]
  14. ACYCLOVIR (ACICLOVIR) [Concomitant]
  15. DEXAMETHASONE [Concomitant]

REACTIONS (1)
  - Thrombosis [None]
